FAERS Safety Report 5406637-5 (Version None)
Quarter: 2007Q3

REPORT INFORMATION
  Report Type: 
  Country: None (occurrence: None)
  Receive Date: 20070806
  Receipt Date: 20070726
  Transmission Date: 20080115
  Serious: Yes (Hospitalization, Other)
  Sender: FDA-Public Use
  Company Number: CA-PFIZER INC-2007062997

PATIENT
  Age: 42 Year
  Sex: Male

DRUGS (5)
  1. SUTENT [Suspect]
     Indication: MALIGNANT MELANOMA
     Route: 048
     Dates: start: 20070701, end: 20070723
  2. DEXAMETHASONE 0.5MG TAB [Concomitant]
  3. RABEPRAZOLE SODIUM [Concomitant]
  4. DILAUDID [Concomitant]
  5. PROPRANOLOL [Concomitant]

REACTIONS (4)
  - LUNG INFILTRATION [None]
  - NEUTROPHIL COUNT DECREASED [None]
  - PO2 DECREASED [None]
  - PYREXIA [None]
